FAERS Safety Report 16734798 (Version 1)
Quarter: 2019Q3

REPORT INFORMATION
  Report Type: Spontaneous
  Country: CA (occurrence: CA)
  Receive Date: 20190823
  Receipt Date: 20190823
  Transmission Date: 20191005
  Serious: Yes (Death, Life-Threatening, Hospitalization, Other)
  Sender: FDA-Public Use
  Company Number: CA-PFIZER INC-2008072310

PATIENT
  Age: 7 Year
  Sex: Female

DRUGS (7)
  1. VINCRISTINE SULFATE. [Suspect]
     Active Substance: VINCRISTINE SULFATE
     Indication: ACUTE MYELOID LEUKAEMIA
  2. VINCRISTINE SULFATE. [Suspect]
     Active Substance: VINCRISTINE SULFATE
     Indication: ACUTE LYMPHOCYTIC LEUKAEMIA
     Dosage: 1.5 MG, DAILY REIDUCTION CHEMO
     Route: 037
     Dates: start: 199705, end: 199705
  3. CYTOSINE ARABINOSIDE [Concomitant]
     Active Substance: CYTARABINE
     Indication: ACUTE LYMPHOCYTIC LEUKAEMIA
     Dosage: UNK
     Route: 037
     Dates: start: 199705, end: 199705
  4. HYDROCORTISONE. [Concomitant]
     Active Substance: HYDROCORTISONE
     Dosage: UNK
     Route: 037
     Dates: start: 199705, end: 199705
  5. METHOTREXATE. [Suspect]
     Active Substance: METHOTREXATE
     Indication: ACUTE LYMPHOCYTIC LEUKAEMIA
     Dosage: UNK
     Route: 037
     Dates: start: 199705, end: 199705
  6. VINCRISTINE SULFATE. [Suspect]
     Active Substance: VINCRISTINE SULFATE
     Indication: ACUTE LYMPHOCYTIC LEUKAEMIA RECURRENT
  7. CYTARABINE. [Suspect]
     Active Substance: CYTARABINE
     Indication: ACUTE LYMPHOCYTIC LEUKAEMIA
     Dosage: UNK
     Route: 037

REACTIONS (15)
  - Medication error [Fatal]
  - Paralysis [Fatal]
  - Coma [Fatal]
  - Hiccups [Fatal]
  - Hyponatraemic seizure [Fatal]
  - Inappropriate antidiuretic hormone secretion [Fatal]
  - Product administration error [Fatal]
  - Neurotoxicity [Fatal]
  - Nystagmus [Fatal]
  - Incorrect route of product administration [Fatal]
  - Wrong product administered [Fatal]
  - Respiratory failure [Fatal]
  - Confusional state [Fatal]
  - Seizure [Fatal]
  - Consciousness fluctuating [Fatal]

NARRATIVE: CASE EVENT DATE: 199705
